FAERS Safety Report 19669702 (Version 4)
Quarter: 2022Q1

REPORT INFORMATION
  Report Type: Report from Study
  Country: PT (occurrence: PT)
  Receive Date: 20210806
  Receipt Date: 20220331
  Transmission Date: 20220423
  Serious: Yes (Other)
  Sender: FDA-Public Use
  Company Number: PT-PFIZER INC-202100968721

PATIENT
  Age: 5 Year
  Sex: Female
  Weight: 16.6 kg

DRUGS (4)
  1. LORLATINIB [Suspect]
     Active Substance: LORLATINIB
     Indication: Neuroblastoma
     Dosage: 75 MG, 1X/DAY
     Route: 048
     Dates: start: 20210719, end: 20210728
  2. LORLATINIB [Suspect]
     Active Substance: LORLATINIB
     Dosage: 50 MG, DAILY
     Route: 048
     Dates: start: 20210729, end: 20210824
  3. LORLATINIB [Suspect]
     Active Substance: LORLATINIB
     Dosage: 25 MG, DAILY
     Route: 048
     Dates: start: 20210825
  4. FLUTICASONE [Concomitant]
     Active Substance: FLUTICASONE
     Dosage: 125 UG, 1X/DAY
     Route: 055

REACTIONS (9)
  - Nervous system disorder [Recovered/Resolved with Sequelae]
  - Mood altered [Recovering/Resolving]
  - Frustration tolerance decreased [Recovering/Resolving]
  - Amnesia [Recovering/Resolving]
  - Crying [Recovering/Resolving]
  - Odynophagia [Recovered/Resolved]
  - Weight increased [Not Recovered/Not Resolved]
  - Dyslipidaemia [Not Recovered/Not Resolved]
  - Wrong technique in product usage process [Recovered/Resolved]

NARRATIVE: CASE EVENT DATE: 20210720
